FAERS Safety Report 15382655 (Version 2)
Quarter: 2018Q4

REPORT INFORMATION
  Report Type: Spontaneous
  Country: US (occurrence: US)
  Receive Date: 20180913
  Receipt Date: 20181108
  Transmission Date: 20190204
  Serious: Yes (Hospitalization)
  Sender: FDA-Public Use
  Company Number: US-NOVOPROD-620393

PATIENT
  Age: 45 Year
  Sex: Male
  Weight: 110.2 kg

DRUGS (7)
  1. PHENTERMINE. [Concomitant]
     Active Substance: PHENTERMINE
     Indication: OBESITY
     Dosage: UNK
     Route: 048
  2. OZEMPIC [Suspect]
     Active Substance: SEMAGLUTIDE
     Indication: OBESITY
     Dosage: 0.25 MG, QW
     Route: 058
     Dates: start: 201805, end: 2018
  3. STELARA [Concomitant]
     Active Substance: USTEKINUMAB
     Indication: CROHN^S DISEASE
     Dosage: UNK
     Route: 058
  4. FIORICET [Concomitant]
     Active Substance: ACETAMINOPHEN\BUTALBITAL\CAFFEINE
     Indication: MIGRAINE
     Dosage: UNK
     Route: 048
  5. OZEMPIC [Suspect]
     Active Substance: SEMAGLUTIDE
     Indication: GLUCOSE TOLERANCE IMPAIRED
     Dosage: 0.5 MG, QW
     Route: 058
     Dates: start: 2018, end: 201808
  6. TOPIRAMATE. [Concomitant]
     Active Substance: TOPIRAMATE
     Indication: MIGRAINE
     Dosage: UNK
     Route: 048
  7. ANDROGEL [Concomitant]
     Active Substance: TESTOSTERONE
     Indication: BLOOD TESTOSTERONE DECREASED
     Dosage: UNK

REACTIONS (1)
  - Megacolon [Recovered/Resolved]

NARRATIVE: CASE EVENT DATE: 201808
